FAERS Safety Report 5084960-4 (Version None)
Quarter: 2006Q3

REPORT INFORMATION
  Report Type: 
  Country: None (occurrence: None)
  Receive Date: 20060821
  Receipt Date: 20060811
  Transmission Date: 20061208
  Serious: Yes (Hospitalization)
  Sender: FDA-Public Use
  Company Number: SE-ABBOTT-06P-150-0340275-00

PATIENT
  Sex: Female

DRUGS (6)
  1. ERGENYL RETARD [Suspect]
     Indication: DRUG USE FOR UNKNOWN INDICATION
     Route: 048
  2. SALURES-K [Interacting]
     Indication: DRUG USE FOR UNKNOWN INDICATION
     Route: 048
     Dates: end: 20060603
  3. LAMOTRIGINE [Interacting]
     Indication: DRUG USE FOR UNKNOWN INDICATION
     Route: 048
  4. SPIRONOLACTONE [Concomitant]
     Indication: DRUG USE FOR UNKNOWN INDICATION
     Route: 048
  5. ATENOLOL [Concomitant]
     Indication: DRUG USE FOR UNKNOWN INDICATION
     Route: 048
  6. ACETYLSALICYLIC ACID SRT [Concomitant]
     Indication: DRUG USE FOR UNKNOWN INDICATION
     Route: 048

REACTIONS (5)
  - DRUG INTERACTION [None]
  - HYPONATRAEMIA [None]
  - NAUSEA [None]
  - PETIT MAL EPILEPSY [None]
  - VOMITING [None]
